FAERS Safety Report 10090665 (Version 3)
Quarter: 2014Q2

REPORT INFORMATION
  Report Type: Spontaneous
  Country: US (occurrence: US)
  Receive Date: 20140421
  Receipt Date: 20140512
  Transmission Date: 20141212
  Serious: Yes (Hospitalization)
  Sender: FDA-Public Use
  Company Number: US-B.I. PHARMACEUTICALS,INC./RIDGEFIELD-2013-BI-09670BP

PATIENT
  Sex: Female
  Weight: 72.5 kg

DRUGS (11)
  1. ASPIRIN [Concomitant]
     Dosage: 81 MG
     Route: 048
  2. GAVISCON [Concomitant]
     Route: 065
  3. MILK THISTLE [Concomitant]
     Route: 065
  4. VITAMIN B12 [Concomitant]
     Route: 065
  5. AVAPRO [Concomitant]
     Dosage: 300 MG
     Route: 048
  6. PRADAXA [Suspect]
     Indication: ATRIAL FIBRILLATION
     Dosage: 300 MG
     Route: 048
     Dates: start: 20111104, end: 20120418
  7. AMIODARONE [Concomitant]
     Dosage: 200 MG
     Route: 048
     Dates: start: 2003, end: 2013
  8. AMLODIPINE [Concomitant]
     Dosage: 5 MG
     Route: 048
     Dates: start: 20110214, end: 201312
  9. CLONAZEPAM [Concomitant]
     Dosage: 1 MG
     Route: 048
     Dates: start: 2011
  10. PROTONIX [Concomitant]
     Indication: GASTROOESOPHAGEAL REFLUX DISEASE
     Dosage: 40 MG
     Route: 048
     Dates: start: 2011
  11. METFORMIN [Concomitant]
     Dosage: 1000 MG
     Route: 048
     Dates: start: 2002

REACTIONS (3)
  - Gastrointestinal haemorrhage [Recovered/Resolved]
  - Haemorrhagic anaemia [Unknown]
  - Epistaxis [Unknown]
